FAERS Safety Report 6421222-4 (Version None)
Quarter: 2009Q4

REPORT INFORMATION
  Report Type: 
  Country: None (occurrence: None)
  Receive Date: 20091029
  Receipt Date: 20091029
  Transmission Date: 20100525
  Serious: Yes (Life-Threatening, Hospitalization, Disabling)
  Sender: FDA-Public Use
  Company Number: None

PATIENT
  Sex: Female
  Weight: 56 kg

DRUGS (2)
  1. VIVAGLOBIN [Suspect]
     Indication: IMMUNODEFICIENCY COMMON VARIABLE
     Dosage: 5.28 G QWEEK SQ
     Route: 058
  2. YAZ [Suspect]
     Indication: POLYCYSTIC OVARIES
     Dosage: 1 TABLET DAILY PO
     Route: 048

REACTIONS (5)
  - CEREBRAL HAEMORRHAGE [None]
  - FACIAL PARESIS [None]
  - MUSCULAR WEAKNESS [None]
  - SUPERIOR SAGITTAL SINUS THROMBOSIS [None]
  - URTICARIA [None]
